FAERS Safety Report 8949581 (Version 1)
Quarter: 2012Q4

REPORT INFORMATION
  Report Type: 
  Country: US (occurrence: US)
  Receive Date: 20121206
  Receipt Date: 20121206
  Transmission Date: 20130627
  Serious: No
  Sender: FDA-Public Use
  Company Number: US-ROXANE LABORATORIES, INC.-2012-RO-02454RO

PATIENT
  Sex: Male

DRUGS (1)
  1. CODEINE SULFATE [Suspect]

REACTIONS (1)
  - Drug hypersensitivity [Unknown]
